FAERS Safety Report 8494282-7 (Version None)
Quarter: 2012Q2

REPORT INFORMATION
  Report Type: 
  Country: None (occurrence: None)
  Receive Date: 20120628
  Receipt Date: 20120614
  Transmission Date: 20120825
  Serious: Yes (Hospitalization, Other)
  Sender: FDA-Public Use
  Company Number: DSA_58085_2012

PATIENT
  Age: 60 Year
  Sex: Female

DRUGS (6)
  1. METRONIDAZOLE [Suspect]
     Indication: DIAGNOSTIC PROCEDURE
     Dosage: 125 MG  (125 MG 1X ORAL)
     Route: 048
  2. METRONIDAZOLE [Concomitant]
  3. QUINOLONE ANTIBACTERIALS [Concomitant]
  4. EPINEPHRINE [Suspect]
     Indication: ANAPHYLACTIC REACTION
     Dosage: (INTRAMUSCULAR)
     Route: 030
  5. SIMVASTATIN [Concomitant]
  6. PENICILLIN [Concomitant]

REACTIONS (3)
  - ANAPHYLACTIC REACTION [None]
  - CEREBRAL VASOCONSTRICTION [None]
  - ISCHAEMIC STROKE [None]
